FAERS Safety Report 5050414-4 (Version None)
Quarter: 2006Q3

REPORT INFORMATION
  Report Type: 
  Country: None (occurrence: None)
  Receive Date: 20060707
  Receipt Date: 20060622
  Transmission Date: 20061208
  Serious: Yes (Hospitalization)
  Sender: FDA-Public Use
  Company Number: 2006JP001880

PATIENT
  Age: 69 Year
  Sex: Female

DRUGS (6)
  1. VESICARE [Suspect]
     Dosage: 5 MG, D, ORAL
     Route: 048
     Dates: start: 20060613, end: 20060614
  2. CLARITHROMYCIN [Concomitant]
  3. AMLODIPINE BESYLATE [Concomitant]
  4. DASEN (SERRAPEPTASE) [Concomitant]
  5. CHOREITOU (HERBAL EXTRACT NOS) [Concomitant]
  6. TINELAC (SENNOSIDE A+B) [Concomitant]

REACTIONS (5)
  - ABDOMINAL DISTENSION [None]
  - ABDOMINAL PAIN [None]
  - BLOOD PRESSURE INCREASED [None]
  - CONSTIPATION [None]
  - HOT FLUSH [None]
